FAERS Safety Report 22143507 (Version 1)
Quarter: 2023Q1

REPORT INFORMATION
  Report Type: Spontaneous
  Country: US (occurrence: US)
  Receive Date: 20230327
  Receipt Date: 20230327
  Transmission Date: 20230417
  Serious: No
  Sender: FDA-Public Use
  Company Number: US-GALDERMA-US2023002974

PATIENT

DRUGS (2)
  1. DIFFERIN GEL [Suspect]
     Active Substance: ADAPALENE
     Indication: Acne
     Dosage: 1 DOSAGE FORM
     Route: 061
     Dates: start: 20230220, end: 20230221
  2. DIFFERIN GEL [Suspect]
     Active Substance: ADAPALENE
     Dosage: 1 DOSAGE FORM
     Route: 061
     Dates: start: 20230221, end: 20230222

REACTIONS (3)
  - Drug ineffective [Not Recovered/Not Resolved]
  - Intentional product misuse [Recovered/Resolved]
  - Intentional overdose [Recovered/Resolved]

NARRATIVE: CASE EVENT DATE: 20230220
